FAERS Safety Report 6454608-2 (Version None)
Quarter: 2009Q4

REPORT INFORMATION
  Report Type: 
  Country: None (occurrence: None)
  Receive Date: 20091118
  Receipt Date: 20091109
  Transmission Date: 20100525
  Serious: Yes (Other)
  Sender: FDA-Public Use
  Company Number: JPI-P-005548

PATIENT
  Age: 40 Year
  Sex: Female

DRUGS (5)
  1. XYREM [Suspect]
     Indication: CATAPLEXY
     Dosage: (,2 IN 1 D),ORAL; 19 GM (4.5 GM,2 IN 1 D),ORAL
     Route: 048
     Dates: start: 20030901
  2. XYREM [Suspect]
     Indication: CATAPLEXY
     Dosage: (,2 IN 1 D),ORAL; 19 GM (4.5 GM,2 IN 1 D),ORAL
     Route: 048
     Dates: start: 20081101
  3. HYDROCHLOROTHIAZIDE [Concomitant]
  4. MODAFINIL [Concomitant]
  5. IRON SUPPLEMENTS [Concomitant]

REACTIONS (3)
  - ABORTION SPONTANEOUS [None]
  - DRUG EXPOSURE DURING PREGNANCY [None]
  - PREGNANCY [None]
